FAERS Safety Report 8604006-8 (Version None)
Quarter: 2012Q3

REPORT INFORMATION
  Report Type: 
  Country: None (occurrence: None)
  Receive Date: 20120820
  Receipt Date: 20120807
  Transmission Date: 20120928
  Serious: No
  Sender: FDA-Public Use
  Company Number: US-BIOGENIDEC-2012BI029533

PATIENT
  Sex: Male

DRUGS (1)
  1. TYSABRI [Suspect]
     Indication: MULTIPLE SCLEROSIS
     Route: 042
     Dates: start: 20080730, end: 20120511

REACTIONS (14)
  - DYSARTHRIA [None]
  - BLEPHAROSPASM [None]
  - HYPOAESTHESIA [None]
  - BODY TEMPERATURE INCREASED [None]
  - BODY TEMPERATURE DECREASED [None]
  - INCOHERENT [None]
  - MULTIPLE SCLEROSIS RELAPSE [None]
  - AMNESIA [None]
  - EYE IRRITATION [None]
  - NUCLEAR MAGNETIC RESONANCE IMAGING ABNORMAL [None]
  - HEARING IMPAIRED [None]
  - DEPRESSION [None]
  - BACK PAIN [None]
  - OCULAR HYPERAEMIA [None]
